FAERS Safety Report 5490218-1 (Version None)
Quarter: 2007Q4

REPORT INFORMATION
  Report Type: 
  Country: None (occurrence: None)
  Receive Date: 20071018
  Receipt Date: 20071015
  Transmission Date: 20080405
  Serious: Yes (Other)
  Sender: FDA-Public Use
  Company Number: US-MERCK-0707USA05064

PATIENT
  Age: 60 Year
  Sex: Female

DRUGS (3)
  1. FOSAMAX [Suspect]
     Indication: OSTEOPOROSIS
     Route: 048
     Dates: start: 20031205, end: 20060727
  2. FLONASE [Concomitant]
     Indication: HYPERSENSITIVITY
     Route: 065
     Dates: start: 20041111
  3. SYNTHROID [Concomitant]
     Indication: THYROID DISORDER
     Route: 065

REACTIONS (11)
  - ANXIETY [None]
  - CAROTID ARTERY STENOSIS [None]
  - CHEST PAIN [None]
  - DYSPNOEA [None]
  - EYE DISORDER [None]
  - HYPOAESTHESIA FACIAL [None]
  - OSTEONECROSIS [None]
  - PHARYNGOLARYNGEAL PAIN [None]
  - SLEEP DISORDER [None]
  - STRESS [None]
  - VOCAL CORD PARALYSIS [None]
